FAERS Safety Report 10207975 (Version 5)
Quarter: 2015Q1

REPORT INFORMATION
  Report Type: Spontaneous
  Country: US (occurrence: US)
  Receive Date: 20140530
  Receipt Date: 20150212
  Transmission Date: 20150720
  Serious: Yes (Other)
  Sender: FDA-Public Use
  Company Number: US-GLAXOSMITHKLINE-A1066583A

PATIENT

DRUGS (13)
  1. ATENOLOL. [Concomitant]
     Active Substance: ATENOLOL
  2. SINUS TABLETS [Concomitant]
  3. ZITHROMAX [Concomitant]
     Active Substance: AZITHROMYCIN DIHYDRATE
  4. NEBULIZER [Concomitant]
     Active Substance: UNSPECIFIED INGREDIENT
  5. HYDROCODONE [Concomitant]
     Active Substance: HYDROCODONE
  6. VITAMIN C [Concomitant]
     Active Substance: ASCORBIC ACID
  7. UNKNOWN COLD MEDICATION [Concomitant]
  8. ZYRTEC [Concomitant]
     Active Substance: CETIRIZINE HYDROCHLORIDE
  9. VENTOLIN [Suspect]
     Active Substance: ALBUTEROL SULFATE
     Indication: ASTHMA
  10. LISINOPRIL. [Concomitant]
     Active Substance: LISINOPRIL
  11. VENTOLIN [Suspect]
     Active Substance: ALBUTEROL SULFATE
     Indication: DYSPNOEA
     Dosage: 90 MCG
     Route: 055
     Dates: start: 2008
  12. BACLOFEN. [Concomitant]
     Active Substance: BACLOFEN
  13. IBUPROFEN. [Concomitant]
     Active Substance: IBUPROFEN

REACTIONS (24)
  - Chills [Recovering/Resolving]
  - Ear pain [Recovering/Resolving]
  - Asthma [Recovering/Resolving]
  - Ill-defined disorder [Recovering/Resolving]
  - Disturbance in attention [Not Recovered/Not Resolved]
  - Pyrexia [Recovering/Resolving]
  - Mucous membrane disorder [Recovering/Resolving]
  - Dyspnoea [Not Recovered/Not Resolved]
  - Brain injury [Unknown]
  - Respiratory tract congestion [Recovering/Resolving]
  - Head injury [Unknown]
  - Bronchitis [Not Recovered/Not Resolved]
  - Lacrimation increased [Recovering/Resolving]
  - Viral infection [Recovering/Resolving]
  - Drug dose omission [Not Recovered/Not Resolved]
  - Dysphemia [Not Recovered/Not Resolved]
  - Rhinorrhoea [Recovering/Resolving]
  - Migraine [Not Recovered/Not Resolved]
  - Asthenia [Recovering/Resolving]
  - Eye discharge [Recovered/Resolved]
  - Nasopharyngitis [Recovering/Resolving]
  - Malaise [Unknown]
  - Memory impairment [Not Recovered/Not Resolved]
  - Sinusitis [Recovering/Resolving]

NARRATIVE: CASE EVENT DATE: 20120205
